FAERS Safety Report 9360029 (Version 1)
Quarter: 2013Q2

REPORT INFORMATION
  Report Type: Spontaneous
  Country: BR (occurrence: BR)
  Receive Date: 20130621
  Receipt Date: 20130621
  Transmission Date: 20140414
  Serious: Yes (Other)
  Sender: FDA-Public Use
  Company Number: BR-AMGEN-BRASP2013043537

PATIENT
  Age: 60 Year
  Sex: Female
  Weight: 74 kg

DRUGS (4)
  1. ENBREL [Suspect]
     Indication: RHEUMATOID ARTHRITIS
     Dosage: 50 MG, 1X/WEEK
     Route: 058
     Dates: start: 201206
  2. METHOTREXATE [Concomitant]
     Dosage: 6 DF, 1X/DAY
  3. SERTRALINE HYDROCHLORIDE [Concomitant]
     Dosage: 100 MG, UNK
  4. SERETIDE [Concomitant]
     Dosage: UNSPECIFIED DOSAGE, 2X/DAY

REACTIONS (2)
  - Asthma [Unknown]
  - Pneumonia [Unknown]
